FAERS Safety Report 10038427 (Version 1)
Quarter: 2014Q1

REPORT INFORMATION
  Report Type: Spontaneous
  Country: US (occurrence: None)
  Receive Date: 20140306
  Receipt Date: 20140306
  Transmission Date: 20141002
  Serious: Yes (Hospitalization)
  Sender: FDA-Public Use
  Company Number: 163-21880-13073092

PATIENT
  Age: 75 Year
  Sex: Female
  Weight: 58.5 kg

DRUGS (16)
  1. REVLIMID (LENALIDOMIDE) (25 MILLIGRAM, CAPSULES) [Suspect]
     Indication: PLASMA CELL MYELOMA
     Route: 048
     Dates: start: 201108
  2. AMBIEN (ZOLPIDEM TARTRATE) [Concomitant]
  3. LOSARTAN/HYDROCHLOROTHIAZIDE (HYZAAR) [Concomitant]
  4. DEXAMETHASONE (DEXAMETHASONE) [Concomitant]
  5. LORAZEPAM (LORAZEPAM) [Concomitant]
  6. ZOFRAN (ONDANSETRON HYDROCHLORIDE) [Concomitant]
  7. HYDROCODONE/ACETAMINOPHEN (REMEDEINE) [Concomitant]
  8. ADVIL (IBUPROFEN) [Concomitant]
  9. CALCIUM + VITAMIN D (LEKOVIT CA) [Concomitant]
  10. ALIGN (BIFIDOBACTERIUM INFANTIS) [Concomitant]
  11. POTASSIUM CHLORIDE ER (POTASSIUM CHLORIDE) [Concomitant]
  12. ACYCLOVIR (ACICLOVIR) (ACICLOVIR) [Concomitant]
  13. ASPIRIN (ACETYLSALICYLIC ACID) [Concomitant]
  14. CRESTOR (ROSUVASTATIN) [Concomitant]
  15. BENADRYL (BENADRYL ALLERGY) [Concomitant]
  16. LUINESTA (ESZOPICLONE) [Concomitant]

REACTIONS (5)
  - Blood potassium decreased [None]
  - Oedema peripheral [None]
  - Rash generalised [None]
  - Nervousness [None]
  - Malaise [None]
